FAERS Safety Report 13084059 (Version 1)
Quarter: 2017Q1

REPORT INFORMATION
  Report Type: Spontaneous
  Country: US (occurrence: US)
  Receive Date: 20170104
  Receipt Date: 20170104
  Transmission Date: 20170428
  Serious: Yes (Death, Other)
  Sender: FDA-Public Use
  Company Number: US-CLINIGEN GROUP PLC/ CLINIGEN HEALTHCARE LTD-E2B_00005604

PATIENT
  Age: 65 Year
  Sex: Male

DRUGS (3)
  1. ACYCLOVIR ACTAVIS [Concomitant]
     Indication: CYTOMEGALOVIRUS INFECTION
  2. FOSCARNET?SODIUM [Suspect]
     Active Substance: FOSCARNET SODIUM
     Indication: CYTOMEGALOVIRUS INFECTION
  3. VALACICLOVIR - FILM-COATED TABLET [Concomitant]
     Indication: CYTOMEGALOVIRUS INFECTION

REACTIONS (10)
  - Hydrocephalus [Unknown]
  - Neurological decompensation [Unknown]
  - Lethargy [Unknown]
  - Disturbance in attention [Unknown]
  - Epilepsy [Unknown]
  - Encephalitis cytomegalovirus [Fatal]
  - CNS ventriculitis [Fatal]
  - General physical health deterioration [Unknown]
  - Nervous system disorder [Unknown]
  - Disorientation [Unknown]
